FAERS Safety Report 5731275-4 (Version None)
Quarter: 2008Q2

REPORT INFORMATION
  Report Type: 
  Country: None (occurrence: None)
  Receive Date: 20080505
  Receipt Date: 20080425
  Transmission Date: 20081010
  Serious: Yes (Hospitalization)
  Sender: FDA-Public Use
  Company Number: GXKR2008CH03994

PATIENT
  Age: 70 Year
  Sex: Female

DRUGS (4)
  1. CYCLOSPORINE [Suspect]
     Indication: IMMUNOSUPPRESSION
     Dosage: INCREASED DOSE,
     Dates: start: 19910101
  2. SIMVASTATIN [Suspect]
     Indication: HYPERLIPIDAEMIA
  3. COLCHICINE(COLCHICINE) [Suspect]
     Indication: GOUT
     Dosage: LONG-TERM THERAPY,
  4. INSULIN (INSULIN) [Concomitant]

REACTIONS (4)
  - ASTHENIA [None]
  - BLADDER CANCER [None]
  - DRUG INTERACTION [None]
  - RHABDOMYOLYSIS [None]
